FAERS Safety Report 6589747-9 (Version None)
Quarter: 2010Q1

REPORT INFORMATION
  Report Type: 
  Country: None (occurrence: None)
  Receive Date: 20100219
  Receipt Date: 20100209
  Transmission Date: 20100710
  Serious: Yes (Other)
  Sender: FDA-Public Use
  Company Number: AU-BAYER-201013938GPV

PATIENT
  Age: 21 Year
  Sex: Female

DRUGS (1)
  1. MIRENA [Suspect]
     Indication: ENDOMETRIOSIS
     Route: 015
     Dates: start: 20091001

REACTIONS (4)
  - BLINDNESS TRANSIENT [None]
  - FACIAL PALSY [None]
  - HEMIPLEGIA [None]
  - MIGRAINE WITHOUT AURA [None]
